FAERS Safety Report 4461373-7 (Version None)
Quarter: 2004Q3

REPORT INFORMATION
  Report Type: 
  Country: None (occurrence: None)
  Receive Date: 20040928
  Receipt Date: 20040915
  Transmission Date: 20050211
  Serious: Yes (Death, Hospitalization)
  Sender: FDA-Public Use
  Company Number: PHBS2004JP12242

PATIENT
  Age: 53 Year
  Sex: Female

DRUGS (5)
  1. CYCLOSPORINE [Suspect]
     Indication: STEM CELL TRANSPLANT
     Route: 065
  2. METHOTREXATE [Concomitant]
  3. INTERFERON ALFA [Suspect]
  4. FLUDARABINE PHOSPHATE [Concomitant]
  5. L-PAM [Concomitant]

REACTIONS (14)
  - ALANINE AMINOTRANSFERASE INCREASED [None]
  - ASPARTATE AMINOTRANSFERASE INCREASED [None]
  - BLOOD ALKALINE PHOSPHATASE INCREASED [None]
  - BLOOD BILIRUBIN INCREASED [None]
  - BLOOD CHOLINESTERASE INCREASED [None]
  - GAMMA-GLUTAMYLTRANSFERASE INCREASED [None]
  - GRAFT VERSUS HOST DISEASE [None]
  - HEPAPLASTIN DECREASED [None]
  - HEPATIC FUNCTION ABNORMAL [None]
  - HEPATITIS C ANTIBODY POSITIVE [None]
  - HEPATITIS C RNA POSITIVE [None]
  - HEPATITIS FULMINANT [None]
  - PANCYTOPENIA [None]
  - SEPSIS [None]
